FAERS Safety Report 11119640 (Version 1)
Quarter: 2015Q2

REPORT INFORMATION
  Report Type: Spontaneous
  Country: US (occurrence: None)
  Receive Date: 20150515
  Receipt Date: 20150515
  Transmission Date: 20150821
  Serious: Yes (Disabling)
  Sender: FDA-Public Use
  Company Number: None

PATIENT
  Age: 62 Year
  Sex: Female

DRUGS (5)
  1. MULTIPLE VITAMINS [Concomitant]
     Active Substance: VITAMINS
  2. LEVOFLOXACIN 750 MG [Suspect]
     Active Substance: LEVOFLOXACIN
     Indication: STAPHYLOCOCCAL INFECTION
     Route: 048
     Dates: start: 20150222, end: 20150307
  3. WRIST BRACE AND ARMBAND [Concomitant]
  4. LOSARTAN [Concomitant]
     Active Substance: LOSARTAN
  5. PYRIDOSTIGMINE BROMIDE. [Concomitant]
     Active Substance: PYRIDOSTIGMINE BROMIDE

REACTIONS (3)
  - Arthralgia [None]
  - Tendon pain [None]
  - Gait disturbance [None]

NARRATIVE: CASE EVENT DATE: 20150217
